FAERS Safety Report 8530613-7 (Version None)
Quarter: 2012Q3

REPORT INFORMATION
  Report Type: 
  Country: None (occurrence: None)
  Receive Date: 20120705
  Receipt Date: 20120619
  Transmission Date: 20120928
  Serious: Yes (Other)
  Sender: FDA-Public Use
  Company Number: 2012032767

PATIENT
  Sex: Male

DRUGS (1)
  1. FACTOR VIII (ANTIHEMOPHILIC FACTOR VIII:C (HUMAN), PAST., MONOCL. ANTI [Suspect]
     Route: 042

REACTIONS (1)
  - ANTI FACTOR VIII ANTIBODY POSITIVE [None]
